FAERS Safety Report 8233654-2 (Version None)
Quarter: 2012Q1

REPORT INFORMATION
  Report Type: 
  Country: None (occurrence: None)
  Receive Date: 20120326
  Receipt Date: 20120320
  Transmission Date: 20120608
  Serious: Yes (Other)
  Sender: FDA-Public Use
  Company Number: PHHY2010CA03905

PATIENT
  Sex: Female

DRUGS (6)
  1. ZOLEDRONOC ACID [Suspect]
     Dosage: 5 MG, UNK
     Route: 042
     Dates: start: 20090101
  2. ARIMIDEX [Concomitant]
  3. ZOLEDRONOC ACID [Suspect]
     Dosage: 5 MG, UNK
     Route: 042
     Dates: start: 20110324
  4. ZOLEDRONOC ACID [Suspect]
     Indication: OSTEOPOROSIS
     Dosage: 5 MG, UNK
     Route: 042
     Dates: start: 20081219
  5. ZOLEDRONOC ACID [Suspect]
     Dosage: 5 MG, UNK
     Route: 042
     Dates: start: 20120320
  6. ZOLEDRONOC ACID [Suspect]
     Dosage: 5 MG, UNK
     Route: 042
     Dates: start: 20100331

REACTIONS (1)
  - BREAST CANCER [None]
